FAERS Safety Report 23540593 (Version 1)
Quarter: 2024Q1

REPORT INFORMATION
  Report Type: Spontaneous
  Country: ES (occurrence: ES)
  Receive Date: 20240219
  Receipt Date: 20240219
  Transmission Date: 20240410
  Serious: Yes (Death, Hospitalization)
  Sender: FDA-Public Use
  Company Number: None

PATIENT
  Age: 73 Year
  Sex: Male

DRUGS (2)
  1. DULOXETINE [Suspect]
     Active Substance: DULOXETINE
     Indication: Depression
     Dosage: (7421A)
     Route: 048
     Dates: start: 20171201, end: 20231127
  2. ASPIRIN [Suspect]
     Active Substance: ASPIRIN
     Indication: Prophylaxis
     Dosage: (176A)
     Route: 048
     Dates: start: 20060101, end: 20231127

REACTIONS (1)
  - Subdural haemorrhage [Fatal]

NARRATIVE: CASE EVENT DATE: 20231127
